FAERS Safety Report 4442286-3 (Version None)
Quarter: 2004Q3

REPORT INFORMATION
  Report Type: 
  Country: None (occurrence: None)
  Receive Date: 20040903
  Receipt Date: 20040719
  Transmission Date: 20050211
  Serious: Yes (Other)
  Sender: FDA-Public Use
  Company Number: 2004UW15009

PATIENT
  Age: 62 Year
  Sex: Female
  Weight: 63.05 kg

DRUGS (6)
  1. CRESTOR [Suspect]
     Indication: HYPERCHOLESTEROLAEMIA
     Dosage: 10 MG DAILY
  2. NEURONTIN [Concomitant]
  3. ULTRAM [Concomitant]
  4. KLONOPIN [Concomitant]
  5. CELEBREX [Concomitant]
  6. ARIMIDEX [Concomitant]

REACTIONS (1)
  - IRRITABILITY [None]
